FAERS Safety Report 23597392 (Version 1)
Quarter: 2024Q1

REPORT INFORMATION
  Report Type: Spontaneous
  Country: DE (occurrence: DE)
  Receive Date: 20240305
  Receipt Date: 20240305
  Transmission Date: 20240410
  Serious: Yes (Congenital Anomaly, Other)
  Sender: FDA-Public Use
  Company Number: None

PATIENT
  Sex: Male
  Weight: 3 kg

DRUGS (2)
  1. ESCITALOPRAM [Suspect]
     Active Substance: ESCITALOPRAM OXALATE
     Indication: Maternal exposure timing unspecified
     Dosage: 20 [MG/D ]/ DISCONTINUED WITHOUT TAPERING (ADVERSE EFFECTS: INNER RESTLESSNESS, CONVULSIONS).?0. - 9
     Route: 064
  2. LEVOTHYROXINE SODIUM [Concomitant]
     Active Substance: LEVOTHYROXINE SODIUM
     Indication: Maternal exposure timing unspecified
     Dosage: 50 [?G/D ]
     Route: 064

REACTIONS (4)
  - Atrial septal defect [Unknown]
  - Foetal exposure during pregnancy [Unknown]
  - Bradycardia neonatal [Recovered/Resolved]
  - Aortic valve disease [Unknown]
